FAERS Safety Report 17763362 (Version 2)
Quarter: 2020Q2

REPORT INFORMATION
  Report Type: Spontaneous
  Country: CH (occurrence: CH)
  Receive Date: 20200509
  Receipt Date: 20200518
  Transmission Date: 20200714
  Serious: Yes (Disabling, Other)
  Sender: FDA-Public Use
  Company Number: CH-AMGEN-CHESP2020073965

PATIENT
  Age: 46 Year
  Sex: Female

DRUGS (9)
  1. SALAZOPYRIN [Concomitant]
     Active Substance: SULFASALAZINE
     Dosage: 100 MG, 2X/DAY
     Route: 048
     Dates: start: 2013
  2. ENBREL [Suspect]
     Active Substance: ETANERCEPT
     Dosage: 25 MG, EVERY 3 WEEKS
     Route: 058
  3. ENBREL [Suspect]
     Active Substance: ETANERCEPT
     Dosage: 25 MG, EVERY 3 WEEKS
     Route: 058
     Dates: start: 201906, end: 201910
  4. ERELZI [Suspect]
     Active Substance: ETANERCEPT-SZZS
     Indication: AXIAL SPONDYLOARTHRITIS
     Dosage: UNK UNK, UNK
     Route: 065
  5. ERELZI [Suspect]
     Active Substance: ETANERCEPT-SZZS
     Dosage: UNK UNK, UNK
     Route: 065
  6. ARCOXIA [Concomitant]
     Active Substance: ETORICOXIB
     Dosage: 60 MG, AS NEEDED
     Route: 048
     Dates: start: 2013
  7. ENBREL [Suspect]
     Active Substance: ETANERCEPT
     Indication: AXIAL SPONDYLOARTHRITIS
     Dosage: 50 MG, EVERY 2 WEEKS
     Route: 058
     Dates: start: 201309, end: 201906
  8. ERELZI [Suspect]
     Active Substance: ETANERCEPT-SZZS
     Indication: SPONDYLITIS
     Dosage: 50 MG, EVERY 2 WEEKS
     Route: 058
     Dates: start: 201906, end: 201910
  9. ESOMEPRAZOLE. [Concomitant]
     Active Substance: ESOMEPRAZOLE MAGNESIUM
     Dosage: 20 MG, DAILY
     Route: 048
     Dates: start: 2013

REACTIONS (3)
  - Product use in unapproved indication [Unknown]
  - Off label use [Unknown]
  - Multiple sclerosis [Recovering/Resolving]

NARRATIVE: CASE EVENT DATE: 201309
